FAERS Safety Report 12450696 (Version 1)
Quarter: 2016Q2

REPORT INFORMATION
  Report Type: Spontaneous
  Country: US (occurrence: None)
  Receive Date: 20160608
  Receipt Date: 20160608
  Transmission Date: 20160815
  Serious: No
  Sender: FDA-Public Use
  Company Number: None

PATIENT
  Age: 66 Year
  Sex: Male

DRUGS (1)
  1. MYCOPHENOLATE MOF TAB 500MG [Suspect]
     Active Substance: MYCOPHENOLATE MOFETIL

REACTIONS (4)
  - Chest discomfort [None]
  - Dyspnoea [None]
  - Abdominal distension [None]
  - Constipation [None]

NARRATIVE: CASE EVENT DATE: 20160601
